FAERS Safety Report 23175714 (Version 2)
Quarter: 2024Q1

REPORT INFORMATION
  Report Type: Report from Study
  Country: US (occurrence: US)
  Receive Date: 20231113
  Receipt Date: 20240214
  Transmission Date: 20240410
  Serious: Yes (Other)
  Sender: FDA-Public Use
  Company Number: US-ABBVIE-5491222

PATIENT
  Sex: Female

DRUGS (2)
  1. SKYRIZI [Suspect]
     Active Substance: RISANKIZUMAB-RZAA
     Indication: Psoriasis
     Dosage: PSORIASIS LABEL INSTRUCTIONS-INJECT 150 MG UNDER THE SKIN AT WEEK 4, THEN EVERY 12 WEEKS
     Route: 058
     Dates: start: 20231209
  2. SKYRIZI [Suspect]
     Active Substance: RISANKIZUMAB-RZAA
     Dosage: WEEK 0
     Route: 058
     Dates: start: 202311, end: 202311

REACTIONS (1)
  - Neoplasm [Unknown]
